FAERS Safety Report 6752975-3 (Version None)
Quarter: 2010Q2

REPORT INFORMATION
  Report Type: 
  Country: None (occurrence: None)
  Receive Date: 20100602
  Receipt Date: 20100602
  Transmission Date: 20101027
  Serious: Yes (Other)
  Sender: FDA-Public Use
  Company Number: None

PATIENT
  Age: 60 Year
  Sex: Female
  Weight: 49.8957 kg

DRUGS (1)
  1. CLINDAMYCIN [Suspect]
     Indication: TOOTH INFECTION
     Dosage: 2 CAPS INITIAL ORAL 1 CAP 4 TIMES 4 TIMES DAILY ORAL
     Route: 048
     Dates: start: 20100512, end: 20100513

REACTIONS (1)
  - ABDOMINAL PAIN UPPER [None]
